FAERS Safety Report 6217167-5 (Version None)
Quarter: 2009Q2

REPORT INFORMATION
  Report Type: 
  Country: None (occurrence: None)
  Receive Date: 20090606
  Receipt Date: 20090602
  Transmission Date: 20091009
  Serious: Yes (Death, Hospitalization, Other)
  Sender: FDA-Public Use
  Company Number: PHHY2009FR21881

PATIENT
  Age: 35 Year
  Sex: Female

DRUGS (25)
  1. SANDIMMUNE [Interacting]
     Indication: STEM CELL TRANSPLANT
     Dosage: 90 MG/DAY
     Route: 042
     Dates: start: 20090127, end: 20090209
  2. SANDIMMUNE [Interacting]
     Indication: TRANSPLANT REJECTION
     Dosage: 75 MG/DAY
     Route: 042
     Dates: start: 20090210, end: 20090222
  3. TRIFLUCAN [Interacting]
     Indication: INFECTION PROPHYLAXIS
     Dosage: UNK
     Dates: start: 20090127, end: 20090222
  4. ESOMEPRAZOLE MAGNESIUM [Suspect]
     Dosage: 80 MG/DAY
     Route: 042
     Dates: start: 20090127, end: 20090309
  5. ERYTHROCINE [Interacting]
     Dosage: 0.25 G, TID
     Route: 042
     Dates: start: 20090208, end: 20090213
  6. ACUPAN [Suspect]
     Dosage: UNK
     Route: 058
     Dates: start: 20090207, end: 20090223
  7. LARGACTIL [Suspect]
     Dosage: UNK
     Dates: start: 20090207, end: 20090222
  8. LARGACTIL [Suspect]
     Dosage: 25 MG/DAY
  9. TARGOCID [Suspect]
     Dosage: UNK
     Route: 042
     Dates: start: 20090207, end: 20090224
  10. OXYNORM [Suspect]
     Dosage: UNK
     Dates: end: 20090223
  11. KETAMINE HCL [Suspect]
     Dosage: 40 MG/DAY
     Route: 058
     Dates: start: 20090208, end: 20090224
  12. KETAMINE HCL [Suspect]
     Dosage: UNK
     Dates: start: 20090302
  13. CELLCEPT [Concomitant]
     Dosage: 750 MG, TID
     Dates: start: 20090127, end: 20090309
  14. MYFORTIC [Concomitant]
  15. ZOVIRAX [Concomitant]
     Dosage: UNK
     Dates: start: 20090127, end: 20090309
  16. BACTRIM [Concomitant]
     Dosage: UNK
     Dates: end: 20090309
  17. CORTICOSTEROIDS [Concomitant]
     Dosage: 2 MG/KG, UNK
     Dates: start: 20090101
  18. CIFLOX [Concomitant]
     Dosage: UNK
     Dates: start: 20090131, end: 20090205
  19. CANCIDAS [Concomitant]
     Dosage: UNK
     Dates: start: 20090223, end: 20090309
  20. METHYLPREDNISOLONE [Concomitant]
     Indication: GRAFT VERSUS HOST DISEASE
     Dosage: 60 MG/DAY
     Dates: start: 20090223
  21. ONDANSETRON HCL [Concomitant]
     Dosage: UNK
     Dates: start: 20090301
  22. PRIMPERAN [Concomitant]
     Dosage: UNK
     Dates: start: 20090216, end: 20090222
  23. TIENAM [Concomitant]
     Dosage: UNK
     Dates: start: 20090224, end: 20090309
  24. BUSULFAN [Concomitant]
  25. FLUDARABINE PHOSPHATE [Concomitant]

REACTIONS (23)
  - ALTERED STATE OF CONSCIOUSNESS [None]
  - ATRIAL FIBRILLATION [None]
  - BLOOD OSMOLARITY DECREASED [None]
  - BLOOD SODIUM DECREASED [None]
  - BLOOD URIC ACID DECREASED [None]
  - CARDIAC FAILURE [None]
  - CHOLELITHIASIS [None]
  - CHOLESTASIS [None]
  - CONFUSIONAL STATE [None]
  - DRUG INTERACTION [None]
  - DRUG LEVEL INCREASED [None]
  - EYELID OEDEMA [None]
  - FACE OEDEMA [None]
  - GASTROINTESTINAL HAEMORRHAGE [None]
  - HALLUCINATION [None]
  - HYPONATRAEMIA [None]
  - HYPOTHERMIA [None]
  - LYMPHOMA [None]
  - NAUSEA [None]
  - OEDEMA PERIPHERAL [None]
  - PAIN [None]
  - TREMOR [None]
  - VOMITING [None]
